FAERS Safety Report 7596759-5 (Version None)
Quarter: 2011Q3

REPORT INFORMATION
  Report Type: 
  Country: None (occurrence: None)
  Receive Date: 20110708
  Receipt Date: 20110706
  Transmission Date: 20111222
  Serious: No
  Sender: FDA-Public Use
  Company Number: US-PFIZER INC-2011152370

PATIENT
  Sex: Female
  Weight: 61.2 kg

DRUGS (15)
  1. LYRICA [Suspect]
     Indication: ARACHNOIDITIS
     Dosage: 225 MG, 2X/DAY
     Route: 048
     Dates: start: 20101101
  2. CYANOCOBALAMIN [Suspect]
     Indication: VITAMIN SUPPLEMENTATION
  3. POTASSIUM [Concomitant]
     Indication: HYPOKALAEMIA
     Dosage: UNK
  4. LASIX [Concomitant]
     Indication: FLUID RETENTION
  5. SYNTHROID [Concomitant]
     Indication: HYPOTHYROIDISM
     Dosage: UNK
  6. MAGNESIUM [Concomitant]
     Indication: MAGNESIUM DEFICIENCY
     Dosage: UNK
  7. VITAMIN B-12 [Concomitant]
     Indication: VITAMIN B12 DEFICIENCY
     Dosage: UNK
  8. VALSARTAN [Concomitant]
     Indication: HYPERTENSION
     Dosage: UNK
  9. NORTRIPTYLINE [Concomitant]
     Indication: HEADACHE
     Dosage: UNK
  10. CLONAZEPAM [Concomitant]
     Indication: ANXIETY
     Dosage: UNK
  11. TOPROL-XL [Concomitant]
     Indication: HYPERTENSION
     Dosage: UNK
  12. CALCIUM [Concomitant]
     Indication: CALCIUM DEFICIENCY
     Dosage: UNK
  13. ACETYLSALICYLIC ACID [Concomitant]
     Indication: CARDIAC DISORDER
     Dosage: UNK
  14. CITALOPRAM [Concomitant]
     Indication: DEPRESSION
     Dosage: UNK
  15. CRESTOR [Concomitant]
     Indication: HYPERTENSION
     Dosage: UNK

REACTIONS (1)
  - WEIGHT INCREASED [None]
